FAERS Safety Report 8071444-4 (Version None)
Quarter: 2012Q1

REPORT INFORMATION
  Report Type: 
  Country: None (occurrence: None)
  Receive Date: 20120125
  Receipt Date: 20120118
  Transmission Date: 20120608
  Serious: Yes (Other)
  Sender: FDA-Public Use
  Company Number: US-US-EMD SERONO, INC.-7104456

PATIENT
  Sex: Male
  Weight: 98 kg

DRUGS (11)
  1. HIGH BLOOD PRESSURE PILL [Concomitant]
     Indication: HYPERTENSION
  2. NAPROSYN [Concomitant]
  3. REBIF [Suspect]
     Indication: MULTIPLE SCLEROSIS
     Route: 058
     Dates: start: 20110929
  4. REBIF [Suspect]
     Route: 058
  5. CELEXA [Concomitant]
     Dosage: QUANTITY OF 20 (6 REFILLS)
  6. CELEXA [Concomitant]
     Dosage: QUANTITY OF 20 (6 REFILLS)
     Dates: start: 20110721
  7. BENEFIBER [Concomitant]
     Dosage: CHEWABLE
     Route: 048
  8. ABILIFY [Concomitant]
     Dosage: ONE HALF
     Dates: start: 20110721
  9. ESCITALOPRAM OXALATE [Concomitant]
  10. XANAX [Concomitant]
     Route: 048
  11. PROCTOZONE HC [Concomitant]
     Dosage: RECTAL CREAM WITH APPLICATOR 2.5%

REACTIONS (3)
  - ARTHRITIS [None]
  - INJECTION SITE MASS [None]
  - INJECTION SITE INDURATION [None]
